FAERS Safety Report 21816034 (Version 1)
Quarter: 2023Q1

REPORT INFORMATION
  Report Type: Spontaneous
  Country: AT (occurrence: AT)
  Receive Date: 20230104
  Receipt Date: 20230104
  Transmission Date: 20230418
  Serious: Yes (Other)
  Sender: FDA-Public Use
  Company Number: AT-BAXTER-2022BAX025959

PATIENT

DRUGS (23)
  1. BELANTAMAB MAFODOTIN [Suspect]
     Active Substance: BELANTAMAB MAFODOTIN
     Indication: Plasma cell myeloma
     Dosage: UNK
     Dates: start: 202209, end: 202211
  2. BELANTAMAB MAFODOTIN [Suspect]
     Active Substance: BELANTAMAB MAFODOTIN
     Indication: Bone lesion
  3. DEXAMETHASONE [Suspect]
     Active Substance: DEXAMETHASONE
     Indication: Bone lesion
     Dosage: 1ST LINE VCD
     Dates: start: 201505, end: 201507
  4. DEXAMETHASONE [Suspect]
     Active Substance: DEXAMETHASONE
     Indication: Plasma cell myeloma
     Dosage: 2ND LINE
     Dates: start: 201706, end: 201901
  5. DEXAMETHASONE [Suspect]
     Active Substance: DEXAMETHASONE
     Dosage: 3RD LINE
     Dates: start: 201901, end: 202107
  6. DEXAMETHASONE [Suspect]
     Active Substance: DEXAMETHASONE
     Dosage: 4TH LINE
     Dates: start: 202107, end: 202108
  7. DEXAMETHASONE [Suspect]
     Active Substance: DEXAMETHASONE
     Dosage: UNK
     Dates: start: 202108, end: 202209
  8. ELOTUZUMAB [Suspect]
     Active Substance: ELOTUZUMAB
     Indication: Plasma cell myeloma
     Dosage: UNK
     Dates: start: 202108, end: 202209
  9. ELOTUZUMAB [Suspect]
     Active Substance: ELOTUZUMAB
     Indication: Plasma cell myeloma
  10. REVLIMID [Suspect]
     Active Substance: LENALIDOMIDE
     Indication: Bone lesion
     Dosage: 2ND LINE
     Dates: start: 201706, end: 201901
  11. REVLIMID [Suspect]
     Active Substance: LENALIDOMIDE
     Indication: Plasma cell myeloma
     Dosage: 3RD LINE
     Dates: start: 201901, end: 202107
  12. IXAZOMIB [Suspect]
     Active Substance: IXAZOMIB
     Indication: Bone lesion
     Dosage: 4TH LINE
     Dates: start: 202107, end: 202108
  13. IXAZOMIB [Suspect]
     Active Substance: IXAZOMIB
     Indication: Plasma cell myeloma
  14. DARATUMUMAB [Suspect]
     Active Substance: DARATUMUMAB
     Indication: Bone lesion
     Dosage: 3RD LINE
     Dates: start: 201901, end: 202107
  15. DARATUMUMAB [Suspect]
     Active Substance: DARATUMUMAB
     Indication: Plasma cell myeloma
  16. POMALIDOMIDE [Suspect]
     Active Substance: POMALIDOMIDE
     Indication: Bone lesion
     Dosage: UNK
     Dates: start: 202108, end: 202209
  17. POMALIDOMIDE [Suspect]
     Active Substance: POMALIDOMIDE
     Indication: Plasma cell myeloma
  18. CYCLOPHOSPHAMIDE [Suspect]
     Active Substance: CYCLOPHOSPHAMIDE
     Indication: Bone lesion
     Dosage: 1ST LINE VCD
     Dates: start: 201505, end: 201507
  19. CYCLOPHOSPHAMIDE [Suspect]
     Active Substance: CYCLOPHOSPHAMIDE
     Indication: Haematopoietic stem cell mobilisation
     Dosage: UNK
     Dates: start: 201508
  20. CYCLOPHOSPHAMIDE [Suspect]
     Active Substance: CYCLOPHOSPHAMIDE
     Indication: Plasma cell myeloma
     Dosage: 4TH LINE
     Dates: start: 202107, end: 202108
  21. VELCADE [Suspect]
     Active Substance: BORTEZOMIB
     Indication: Plasma cell myeloma
     Dosage: 1ST LINE VCD
     Dates: start: 201505, end: 201507
  22. VELCADE [Suspect]
     Active Substance: BORTEZOMIB
     Indication: Bone lesion
  23. MELPHALAN [Suspect]
     Active Substance: MELPHALAN
     Indication: Chemotherapy
     Dosage: UNK
     Dates: start: 201509

REACTIONS (5)
  - Neoplasm progression [Unknown]
  - Keratopathy [Unknown]
  - Therapy partial responder [Unknown]
  - Therapy partial responder [Unknown]
  - Toxicity to various agents [Unknown]

NARRATIVE: CASE EVENT DATE: 20170601
